FAERS Safety Report 5756210-4 (Version None)
Quarter: 2008Q2

REPORT INFORMATION
  Report Type: 
  Country: None (occurrence: None)
  Receive Date: 20080602
  Receipt Date: 20080521
  Transmission Date: 20081010
  Serious: Yes (Hospitalization)
  Sender: FDA-Public Use
  Company Number: JP-PFIZER INC-2008038525

PATIENT
  Sex: Male

DRUGS (3)
  1. GABAPEN [Suspect]
     Indication: EPILEPSY
     Dosage: DAILY DOSE:1800MG
     Route: 048
     Dates: start: 20071221, end: 20080326
  2. TEGRETOL [Concomitant]
     Route: 048
     Dates: start: 20071123, end: 20080326
  3. CLOBAZAM [Concomitant]
     Route: 048
     Dates: start: 20071203, end: 20080326

REACTIONS (1)
  - DRUG ERUPTION [None]
